FAERS Safety Report 7545066-5 (Version None)
Quarter: 2011Q2

REPORT INFORMATION
  Report Type: 
  Country: None (occurrence: None)
  Receive Date: 20110610
  Receipt Date: 20110610
  Transmission Date: 20111010
  Serious: Yes (Other)
  Sender: FDA-Public Use
  Company Number: None

PATIENT
  Age: 79 Year
  Sex: Male
  Weight: 86.1834 kg

DRUGS (1)
  1. DILANTIN [Suspect]
     Dosage: 100MG QD

REACTIONS (5)
  - DRUG INTERACTION [None]
  - CRYING [None]
  - SUICIDAL IDEATION [None]
  - WEIGHT DECREASED [None]
  - THINKING ABNORMAL [None]
